FAERS Safety Report 6649513-2 (Version None)
Quarter: 2010Q1

REPORT INFORMATION
  Report Type: 
  Country: None (occurrence: None)
  Receive Date: 20100324
  Receipt Date: 20100324
  Transmission Date: 20100710
  Serious: Yes (Hospitalization, Disabling)
  Sender: FDA-Public Use
  Company Number: None

PATIENT
  Age: 71 Year
  Sex: Female
  Weight: 67.1324 kg

DRUGS (2)
  1. SIMVASTATIN [Suspect]
     Indication: BLOOD CHOLESTEROL INCREASED
     Dosage: 40 MG EVERY DAY PO
     Route: 048
     Dates: start: 20090101, end: 20090401
  2. SIMVASTATIN [Suspect]
     Indication: LOW DENSITY LIPOPROTEIN INCREASED
     Dosage: 40 MG EVERY DAY PO
     Route: 048
     Dates: start: 20090101, end: 20090401

REACTIONS (1)
  - RHABDOMYOLYSIS [None]
